FAERS Safety Report 5126979-0 (Version None)
Quarter: 2006Q4

REPORT INFORMATION
  Report Type: 
  Country: None (occurrence: None)
  Receive Date: 20061013
  Receipt Date: 20060717
  Transmission Date: 20070319
  Serious: Yes (Other)
  Sender: FDA-Public Use
  Company Number: US-AVENTIS-200615967US

PATIENT
  Sex: Male
  Weight: 100 kg

DRUGS (8)
  1. LANTUS [Suspect]
     Indication: DIABETES MELLITUS NON-INSULIN-DEPENDENT
     Dates: start: 20030101
  2. LANTUS [Suspect]
     Dates: start: 20060716, end: 20060716
  3. LANTUS [Suspect]
     Dates: start: 20060717
  4. PREDNISONE TAB [Concomitant]
  5. SYNTHROID [Concomitant]
  6. ENALAPRIL MALEATE [Concomitant]
  7. ASPIRIN [Concomitant]
  8. NEURONTIN [Concomitant]
     Indication: RESTLESS LEGS SYNDROME
     Dosage: DOSE: 2 TABS

REACTIONS (5)
  - APPENDICITIS PERFORATED [None]
  - BLADDER CANCER [None]
  - BLOOD GLUCOSE INCREASED [None]
  - COLON CANCER [None]
  - HYPERGLYCAEMIA [None]
